FAERS Safety Report 6256874-5 (Version None)
Quarter: 2009Q3

REPORT INFORMATION
  Report Type: 
  Country: None (occurrence: None)
  Receive Date: 20090706
  Receipt Date: 20090629
  Transmission Date: 20100115
  Serious: Yes (Death, Hospitalization)
  Sender: FDA-Public Use
  Company Number: PHBS2001IT09235

PATIENT
  Age: 71 Year
  Sex: Male

DRUGS (8)
  1. SANDIMMUNE [Suspect]
     Indication: HEART TRANSPLANT
     Dosage: 125 MG/DAY
     Route: 048
     Dates: start: 19910101
  2. SIVASTIN [Interacting]
     Indication: HYPERCHOLESTEROLAEMIA
     Dosage: 20 MG/DAY
     Route: 048
     Dates: start: 19990101, end: 20010712
  3. ENAPREN [Concomitant]
     Dosage: 20 MG/DAY
     Route: 048
  4. LASIX [Concomitant]
     Dosage: 75 MG/DAY
  5. ZYLORIC [Concomitant]
     Dosage: 300 MG/DAY
     Route: 048
  6. ZANEDIP [Concomitant]
     Dosage: 2.5 MG/DAY
  7. ZANEDIP [Concomitant]
     Dosage: 10 MG, UNK
     Route: 048
  8. LINIDEX [Concomitant]
     Dosage: 1 TAB/DAY

REACTIONS (8)
  - CARDIAC FAILURE [None]
  - DEATH [None]
  - DRUG INTERACTION [None]
  - HAEMODIALYSIS [None]
  - MYALGIA [None]
  - RENAL FAILURE [None]
  - RENAL FAILURE CHRONIC [None]
  - RHABDOMYOLYSIS [None]
